FAERS Safety Report 7197607-8 (Version None)
Quarter: 2010Q4

REPORT INFORMATION
  Report Type: 
  Country: None (occurrence: None)
  Receive Date: 20101227
  Receipt Date: 20101216
  Transmission Date: 20110411
  Serious: Yes (Hospitalization)
  Sender: FDA-Public Use
  Company Number: FI-ASTRAZENECA-2010SE59161

PATIENT
  Age: 56 Year
  Sex: Male

DRUGS (5)
  1. SEROQUEL XR [Suspect]
     Indication: BIPOLAR DISORDER
     Route: 048
     Dates: start: 20091015, end: 20100527
  2. ZYPREXA [Concomitant]
     Indication: BIPOLAR DISORDER
     Route: 048
     Dates: start: 20091015, end: 20101012
  3. LITO [Concomitant]
     Indication: BIPOLAR DISORDER
     Route: 048
     Dates: start: 20080523, end: 20100810
  4. TENOX [Concomitant]
     Indication: RESTLESSNESS
     Route: 048
     Dates: start: 20080523
  5. OPAMOX [Concomitant]
     Indication: RESTLESSNESS
     Dosage: UNKNOWN DOSE AS REQUIRED
     Route: 048
     Dates: start: 20100523

REACTIONS (2)
  - LEUKOPENIA [None]
  - NEUTROPENIA [None]
